FAERS Safety Report 12919075 (Version 1)
Quarter: 2016Q4

REPORT INFORMATION
  Report Type: Spontaneous
  Country: US (occurrence: US)
  Receive Date: 20161108
  Receipt Date: 20161108
  Transmission Date: 20170207
  Serious: Yes (Death, Hospitalization, Other)
  Sender: FDA-Public Use
  Company Number: US-BRISTOL-MYERS SQUIBB COMPANY-BMS-2016-087996

PATIENT
  Sex: Female

DRUGS (1)
  1. OPDIVO [Suspect]
     Active Substance: NIVOLUMAB
     Indication: LUNG NEOPLASM MALIGNANT
     Route: 042

REACTIONS (9)
  - Pseudomonas infection [Unknown]
  - Pruritus [Recovered/Resolved]
  - Appetite disorder [Recovering/Resolving]
  - Pleural effusion [Unknown]
  - Aspiration pleural cavity [Unknown]
  - Dry skin [Unknown]
  - Death [Fatal]
  - Diarrhoea [Recovered/Resolved]
  - Constipation [Unknown]
